FAERS Safety Report 12254132 (Version 1)
Quarter: 2016Q2

REPORT INFORMATION
  Report Type: Spontaneous
  Country: US (occurrence: US)
  Receive Date: 20160411
  Receipt Date: 20160411
  Transmission Date: 20160815
  Serious: No
  Sender: FDA-Public Use
  Company Number: US-HORIZON-ACT-0087-2016

PATIENT
  Age: 21 Year
  Sex: Female

DRUGS (4)
  1. KETOCONAZOLE. [Concomitant]
     Active Substance: KETOCONAZOLE
  2. ITRACONAZOLE. [Concomitant]
     Active Substance: ITRACONAZOLE
  3. BACTRIM [Concomitant]
     Active Substance: SULFAMETHOXAZOLE\TRIMETHOPRIM
  4. ACTIMMUNE [Suspect]
     Active Substance: INTERFERON GAMMA-1B
     Indication: CHRONIC GRANULOMATOUS DISEASE
     Dosage: 70 ?G THREE TIMES WEEKLY

REACTIONS (2)
  - Therapy cessation [Unknown]
  - Headache [Unknown]
